FAERS Safety Report 12800214 (Version 1)
Quarter: 2016Q3

REPORT INFORMATION
  Report Type: Spontaneous
  Country: CA (occurrence: CA)
  Receive Date: 20160930
  Receipt Date: 20160930
  Transmission Date: 20161109
  Serious: Yes (Other)
  Sender: FDA-Public Use
  Company Number: CA-ACTELION-A-NJ2016-142906

PATIENT
  Age: 68 Year
  Sex: Male

DRUGS (11)
  1. ARANESP [Concomitant]
     Active Substance: DARBEPOETIN ALFA
  2. MINOXIDIL. [Concomitant]
     Active Substance: MINOXIDIL
  3. OPSUMIT [Suspect]
     Active Substance: MACITENTAN
     Indication: PULMONARY HYPERTENSION
     Route: 048
  4. ACEBUTOLOL HYDROCHLORIDE. [Concomitant]
     Active Substance: ACEBUTOLOL HYDROCHLORIDE
  5. DILTIAZEM. [Concomitant]
     Active Substance: DILTIAZEM
  6. FOLIC ACID. [Concomitant]
     Active Substance: FOLIC ACID
  7. PREGABALIN. [Concomitant]
     Active Substance: PREGABALIN
  8. LIPITOR [Concomitant]
     Active Substance: ATORVASTATIN CALCIUM
  9. VITAMIN B12 [Concomitant]
     Active Substance: CYANOCOBALAMIN
  10. FUROSEMIDE. [Concomitant]
     Active Substance: FUROSEMIDE
  11. GLYBURIDE. [Concomitant]
     Active Substance: GLYBURIDE

REACTIONS (1)
  - Haemoglobin abnormal [Recovering/Resolving]
